FAERS Safety Report 12540350 (Version 6)
Quarter: 2016Q3

REPORT INFORMATION
  Report Type: Spontaneous
  Country: US (occurrence: US)
  Receive Date: 20160708
  Receipt Date: 20160915
  Transmission Date: 20161109
  Serious: No
  Sender: FDA-Public Use
  Company Number: US-PFIZER INC-2016298116

PATIENT
  Age: 90 Year
  Sex: Female
  Weight: 89.8 kg

DRUGS (4)
  1. IBRANCE [Suspect]
     Active Substance: PALBOCICLIB
     Indication: BREAST CANCER METASTATIC
     Dosage: 100 MG, DAILY
     Route: 048
     Dates: start: 20160527
  2. IBRANCE [Suspect]
     Active Substance: PALBOCICLIB
     Dosage: 100 MG, DAILY
     Route: 048
     Dates: start: 20160626
  3. IBRANCE [Suspect]
     Active Substance: PALBOCICLIB
     Dosage: 100 MG, (DAYS 1-21 Q 28 DAYS)
     Route: 048
     Dates: start: 20160527
  4. IBRANCE [Suspect]
     Active Substance: PALBOCICLIB
     Dosage: 100 MG, DAILY
     Route: 048
     Dates: start: 20160526

REACTIONS (12)
  - Cough [Unknown]
  - Fluid intake reduced [Unknown]
  - Impaired healing [Unknown]
  - Tremor [Unknown]
  - Throat irritation [Unknown]
  - Decreased appetite [Unknown]
  - Oral pain [Unknown]
  - Fatigue [Unknown]
  - Depression [Unknown]
  - Skin discolouration [Unknown]
  - Chest pain [Unknown]
  - Skin exfoliation [Unknown]
